FAERS Safety Report 6045249-X (Version None)
Quarter: 2009Q1

REPORT INFORMATION
  Report Type: 
  Country: None (occurrence: None)
  Receive Date: 20090121
  Receipt Date: 20090108
  Transmission Date: 20090719
  Serious: Yes (Hospitalization, Other)
  Sender: FDA-Public Use
  Company Number: PHHY2008JP29302

PATIENT
  Sex: Male
  Weight: 75 kg

DRUGS (7)
  1. ZOMETA [Suspect]
     Indication: METASTASES TO BONE
     Dosage: 4 MG, UNK
     Route: 042
     Dates: start: 20081113
  2. SUTENT [Suspect]
     Indication: RENAL CELL CARCINOMA
     Dosage: 50 MG, UNK
     Route: 048
     Dates: start: 20081106, end: 20081203
  3. SUTENT [Suspect]
     Dosage: 37.5 MG
     Route: 048
     Dates: start: 20081224
  4. NORVASC [Concomitant]
     Dosage: 5 MG
     Route: 048
  5. BLOPRESS [Concomitant]
     Dosage: 8 MG
     Route: 048
  6. URSO 250 [Concomitant]
     Dosage: 15 MG
     Route: 048
  7. GASTER [Concomitant]
     Dosage: 20 MG
     Route: 048

REACTIONS (10)
  - ARTHRALGIA [None]
  - DYSGEUSIA [None]
  - EFFUSION [None]
  - ERYTHEMA [None]
  - HEPATIC FUNCTION ABNORMAL [None]
  - MALIGNANT NEOPLASM PROGRESSION [None]
  - PURPURA [None]
  - PYREXIA [None]
  - SKIN EXFOLIATION [None]
  - WHITE BLOOD CELL COUNT DECREASED [None]
